FAERS Safety Report 22286439 (Version 5)
Quarter: 2024Q1

REPORT INFORMATION
  Report Type: Spontaneous
  Country: CA (occurrence: CA)
  Receive Date: 20230505
  Receipt Date: 20240214
  Transmission Date: 20240410
  Serious: Yes (Hospitalization, Other)
  Sender: FDA-Public Use
  Company Number: CA-CELLTRION INC.-2021CA016766

PATIENT

DRUGS (24)
  1. INFLECTRA [Suspect]
     Active Substance: INFLIXIMAB-DYYB
     Indication: Crohn^s disease
     Dosage: 400 MG, Q 2, 6 THEN EVERY 8 WEEKS
     Route: 042
     Dates: start: 20210824, end: 20220308
  2. INFLECTRA [Suspect]
     Active Substance: INFLIXIMAB-DYYB
     Dosage: 400 MG, 2, 6 THEN EVERY 8 WEEKS
     Route: 042
     Dates: start: 20210921
  3. INFLECTRA [Suspect]
     Active Substance: INFLIXIMAB-DYYB
     Dosage: 400 MG, 2, 6 THEN EVERY 8 WEEKS
     Route: 042
     Dates: start: 20211116
  4. INFLECTRA [Suspect]
     Active Substance: INFLIXIMAB-DYYB
     Dosage: 400 MG, 2, 6 THEN EVERY 8 WEEKS
     Route: 042
     Dates: start: 20220111
  5. INFLECTRA [Suspect]
     Active Substance: INFLIXIMAB-DYYB
     Dosage: 400 MG, 2, 6 THEN EVERY 8 WEEKS
     Route: 042
     Dates: start: 20220308
  6. INFLECTRA [Suspect]
     Active Substance: INFLIXIMAB-DYYB
     Dosage: 550 MG EVERY 8 WEEKS
     Route: 042
     Dates: start: 20220503, end: 20230103
  7. INFLECTRA [Suspect]
     Active Substance: INFLIXIMAB-DYYB
     Dosage: 550 MG EVERY 8 WEEKS
     Route: 042
     Dates: start: 20220627
  8. INFLECTRA [Suspect]
     Active Substance: INFLIXIMAB-DYYB
     Dosage: 550 MG EVERY 8 WEEKS
     Route: 042
     Dates: start: 20220824
  9. INFLECTRA [Suspect]
     Active Substance: INFLIXIMAB-DYYB
     Dosage: 550 MG EVERY 8 WEEKS
     Route: 042
     Dates: start: 20221103
  10. INFLECTRA [Suspect]
     Active Substance: INFLIXIMAB-DYYB
     Dosage: 550 MG EVERY 8 WEEKS
     Route: 042
     Dates: start: 20230103
  11. INFLECTRA [Suspect]
     Active Substance: INFLIXIMAB-DYYB
     Dosage: 565 MG EVERY 8 WEEKS
     Route: 042
     Dates: start: 20230228, end: 20230228
  12. INFLECTRA [Suspect]
     Active Substance: INFLIXIMAB-DYYB
     Dosage: 565 MG EVERY 8 WEEKS
     Route: 042
     Dates: start: 20230228
  13. INFLECTRA [Suspect]
     Active Substance: INFLIXIMAB-DYYB
     Dosage: 565 MG EVERY 6 WEEKS (RECEIVED THEIR INFUSION ON 8 WEEKS)
     Route: 042
     Dates: start: 20230425
  14. INFLECTRA [Suspect]
     Active Substance: INFLIXIMAB-DYYB
     Dosage: 565 MG AFTER 6 WEEKS
     Route: 042
     Dates: start: 20230607
  15. INFLECTRA [Suspect]
     Active Substance: INFLIXIMAB-DYYB
     Dosage: 565 MG EVERY 6 WEEKS
     Route: 042
     Dates: start: 20230719
  16. INFLECTRA [Suspect]
     Active Substance: INFLIXIMAB-DYYB
     Dosage: 565 MG, EVERY 6 WEEKS
     Route: 042
     Dates: start: 20230830
  17. INFLECTRA [Suspect]
     Active Substance: INFLIXIMAB-DYYB
     Dosage: 5 MG/KG, EVERY 6 WEEKS
     Route: 042
     Dates: start: 20231003
  18. INFLECTRA [Suspect]
     Active Substance: INFLIXIMAB-DYYB
     Dosage: 565 MG EVERY 6 WEEKS
     Route: 042
     Dates: start: 20231114
  19. INFLECTRA [Suspect]
     Active Substance: INFLIXIMAB-DYYB
     Dosage: 565 MG EVERY 6 WEEKS (6 WEEKS AND 1 DAY)
     Route: 042
     Dates: start: 20231227
  20. INFLECTRA [Suspect]
     Active Substance: INFLIXIMAB-DYYB
     Dosage: 406 MG (5 MG/KG), EVERY 6 WEEKS
     Route: 042
     Dates: start: 20240207
  21. PREDNISONE [Concomitant]
     Active Substance: PREDNISONE
     Dosage: 1 DF, DOSAGE INFORMATION NOT AVAILABLE
     Route: 065
  22. REBINYN [Concomitant]
     Active Substance: COAGULATION FACTOR IX (RECOMBINANT), GLYCOPEGYLATED
     Dosage: 4000 IU FREQUENCY UNKNOWN
     Route: 065
     Dates: start: 20201013
  23. REBINYN [Concomitant]
     Active Substance: COAGULATION FACTOR IX (RECOMBINANT), GLYCOPEGYLATED
     Dosage: 4000 IU EVERY 10 DAYS
     Route: 065
     Dates: start: 20201013
  24. ASCORBIC ACID\BIOTIN\CALCIUM PANTOTHENATE\CYANOCOBALAMIN\FOLIC ACID\NI [Concomitant]
     Active Substance: ASCORBIC ACID\BIOTIN\CALCIUM PANTOTHENATE\CYANOCOBALAMIN\FOLIC ACID\NIACINAMIDE\PYRIDOXINE HYDROCHLO
     Dosage: 1 DF, DOSAGE INFORMATION NOT AVAILABLE
     Route: 065

REACTIONS (12)
  - Gastrointestinal haemorrhage [Recovering/Resolving]
  - Haemoglobin abnormal [Recovering/Resolving]
  - Headache [Recovering/Resolving]
  - Anal fissure [Recovering/Resolving]
  - Off label use [Unknown]
  - Inappropriate schedule of product administration [Unknown]
  - Condition aggravated [Recovered/Resolved]
  - Anorectal discomfort [Recovering/Resolving]
  - Nasopharyngitis [Not Recovered/Not Resolved]
  - Oropharyngeal pain [Recovering/Resolving]
  - Rhinorrhoea [Not Recovered/Not Resolved]
  - Aphthous ulcer [Recovered/Resolved]

NARRATIVE: CASE EVENT DATE: 20210101
